FAERS Safety Report 8885697 (Version 1)
Quarter: 2012Q4

REPORT INFORMATION
  Report Type: 
  Country: US (occurrence: US)
  Receive Date: 20121101
  Receipt Date: 20121101
  Transmission Date: 20130627
  Serious: No
  Sender: FDA-Public Use
  Company Number: US-PFIZER INC-2012268419

PATIENT
  Age: 33 Year
  Sex: Female
  Weight: 54.4 kg

DRUGS (1)
  1. ADVIL CONGESTION RELIEF [Suspect]
     Indication: STEVENS JOHNSON SYNDROME
     Dosage: UNK, 2x/day
     Route: 048
     Dates: start: 20121021, end: 20121024

REACTIONS (4)
  - Off label use [Unknown]
  - Erythema [Not Recovered/Not Resolved]
  - Pruritus [Not Recovered/Not Resolved]
  - Urticaria [Not Recovered/Not Resolved]
